FAERS Safety Report 20452533 (Version 1)
Quarter: 2022Q1

REPORT INFORMATION
  Report Type: Spontaneous
  Country: JP (occurrence: JP)
  Receive Date: 20220210
  Receipt Date: 20220210
  Transmission Date: 20220423
  Serious: Yes (Other)
  Sender: FDA-Public Use
  Company Number: JP-NOVARTISPH-NVSJ2022JP002697

PATIENT
  Age: 91 Year
  Sex: Male

DRUGS (1)
  1. COSENTYX [Suspect]
     Active Substance: SECUKINUMAB
     Indication: Pneumonia aspiration
     Dosage: 300 MG, QW
     Route: 058
     Dates: start: 20220106, end: 20220204

REACTIONS (1)
  - Pneumonia aspiration [Not Recovered/Not Resolved]
